FAERS Safety Report 4263585-4 (Version None)
Quarter: 2004Q1

REPORT INFORMATION
  Report Type: 
  Country: None (occurrence: None)
  Receive Date: 20040105
  Receipt Date: 20031112
  Transmission Date: 20041129
  Serious: Yes (Hospitalization)
  Sender: FDA-Public Use
  Company Number: PHBS2003JP12766

PATIENT
  Age: 66 Year
  Sex: Female
  Weight: 58 kg

DRUGS (5)
  1. DIOVAN [Suspect]
     Indication: HYPERTENSION
     Dosage: 80 MG/DAY
     Route: 048
     Dates: start: 20031106, end: 20031107
  2. SIMVASTATIN [Suspect]
     Indication: HYPERLIPIDAEMIA
     Dosage: 5 MG/DAY
     Route: 048
     Dates: start: 19910101, end: 20031107
  3. FLOMOX [Concomitant]
     Indication: INFECTION PROPHYLAXIS
     Dosage: 300 MG/DAY
     Route: 048
     Dates: start: 20031105, end: 20031107
  4. MYSLEE [Concomitant]
     Indication: INSOMNIA
     Dosage: 5 MG/DAY
     Route: 048
     Dates: start: 20031103
  5. MYSLEE [Concomitant]
     Dosage: 1500 ML/DAY
     Route: 042
     Dates: start: 20031109

REACTIONS (5)
  - AORTIC VALVE INCOMPETENCE [None]
  - CHEST PAIN [None]
  - HYPERTENSION [None]
  - INFECTION PROPHYLAXIS [None]
  - RHABDOMYOLYSIS [None]
